FAERS Safety Report 5581389-7 (Version None)
Quarter: 2008Q1

REPORT INFORMATION
  Report Type: 
  Country: None (occurrence: None)
  Receive Date: 20080104
  Receipt Date: 20071227
  Transmission Date: 20080703
  Serious: Yes (Hospitalization, Other)
  Sender: FDA-Public Use
  Company Number: SE-BRISTOL-MYERS SQUIBB COMPANY-14004980

PATIENT
  Age: 22 Year
  Sex: Male

DRUGS (5)
  1. ENDOXAN [Suspect]
     Indication: B-CELL LYMPHOMA
  2. DOXORUBICIN HCL [Suspect]
     Indication: B-CELL LYMPHOMA
  3. PREDNISOLONE [Suspect]
     Indication: B-CELL LYMPHOMA
  4. VINCRISTINE [Suspect]
     Indication: B-CELL LYMPHOMA
  5. MABTHERA [Concomitant]

REACTIONS (3)
  - LIP BLISTER [None]
  - NEUTROPENIA [None]
  - PYREXIA [None]
